FAERS Safety Report 9409519 (Version 2)
Quarter: 2013Q3

REPORT INFORMATION
  Report Type: Report from Study
  Country: BR (occurrence: BR)
  Receive Date: 20130719
  Receipt Date: 20130805
  Transmission Date: 20140515
  Serious: No
  Sender: FDA-Public Use
  Company Number: BR-ABBOTT-13P-020-1117718-00

PATIENT
  Sex: Female
  Weight: 110 kg

DRUGS (4)
  1. HUMIRA [Suspect]
     Indication: RHEUMATOID ARTHRITIS
     Route: 058
     Dates: start: 201303
  2. INDOMETHACIN [Concomitant]
     Indication: RHEUMATOID ARTHRITIS
     Route: 048
     Dates: start: 200107
  3. PREDNISONE [Concomitant]
     Indication: RHEUMATOID ARTHRITIS
     Route: 048
     Dates: start: 200107
  4. MIOFLEX A (ACETAMINOPEN/CAFFEINE/CARISOPRODOL/DICLOFENAC SODIUM) [Concomitant]
     Indication: RHEUMATOID ARTHRITIS
     Route: 048
     Dates: start: 2012

REACTIONS (3)
  - Arrhythmia [Unknown]
  - Injection site pruritus [Unknown]
  - Injection site warmth [Unknown]
